FAERS Safety Report 5034467-5 (Version None)
Quarter: 2006Q2

REPORT INFORMATION
  Report Type: 
  Country: None (occurrence: None)
  Receive Date: 20060620
  Receipt Date: 20060606
  Transmission Date: 20061013
  Serious: Yes (Hospitalization)
  Sender: FDA-Public Use
  Company Number: 340003K06FRA

PATIENT
  Age: 40 Year
  Sex: Female

DRUGS (4)
  1. OVIDREL [Suspect]
     Indication: ASSISTED FERTILISATION
     Dates: start: 20050301
  2. CETROTIDE [Suspect]
     Indication: ASSISTED FERTILISATION
     Dates: start: 20050301
  3. FOLLITROPIN BETA [Concomitant]
  4. GONADOTROPINS [Concomitant]

REACTIONS (3)
  - NASOPHARYNGITIS [None]
  - PALPITATIONS [None]
  - PULMONARY EMBOLISM [None]
